FAERS Safety Report 17228995 (Version 1)
Quarter: 2020Q1

REPORT INFORMATION
  Report Type: Spontaneous
  Country: US (occurrence: US)
  Receive Date: 20200102
  Receipt Date: 20200102
  Transmission Date: 20200409
  Serious: Yes (Life-Threatening, Hospitalization, Disabling)
  Sender: FDA-Public Use
  Company Number: None

PATIENT
  Age: 59 Year
  Sex: Male
  Weight: 85.8 kg

DRUGS (1)
  1. SKYRIZI [Suspect]
     Active Substance: RISANKIZUMAB-RZAA
     Indication: PSORIASIS
     Dosage: ?          OTHER FREQUENCY:EVERY THREE MONTHS;?
     Route: 058
     Dates: start: 20190201, end: 20191207

REACTIONS (6)
  - Magnetic resonance imaging abnormal [None]
  - Intervertebral disc disorder [None]
  - Neck pain [None]
  - Infection [None]
  - Arthritis bacterial [None]
  - Sepsis [None]

NARRATIVE: CASE EVENT DATE: 20191208
